FAERS Safety Report 5220988-9 (Version None)
Quarter: 2007Q1

REPORT INFORMATION
  Report Type: 
  Country: None (occurrence: None)
  Receive Date: 20070123
  Receipt Date: 20070112
  Transmission Date: 20070707
  Serious: Yes (Death)
  Sender: FDA-Public Use
  Company Number: E3810-00572-SPO-JP

PATIENT
  Age: 91 Year
  Sex: Female

DRUGS (2)
  1. E3810 (RABEPRAZOLE) (RABEPRAZOLE SODIUM) [Suspect]
     Indication: REFLUX OESOPHAGITIS
     Dosage: ORAL
     Route: 048
  2. GASMOTIN (MOSAPRIDE CITRATE) [Concomitant]

REACTIONS (1)
  - INTERSTITIAL LUNG DISEASE [None]
